FAERS Safety Report 17460166 (Version 2)
Quarter: 2020Q1

REPORT INFORMATION
  Report Type: Spontaneous
  Country: US (occurrence: US)
  Receive Date: 20200225
  Receipt Date: 20200327
  Transmission Date: 20200409
  Serious: No
  Sender: FDA-Public Use
  Company Number: US-CELGENEUS-USA-20200205659

PATIENT
  Sex: Female

DRUGS (3)
  1. POMALYST [Suspect]
     Active Substance: POMALIDOMIDE
     Dosage: 2 MILLIGRAM
     Route: 048
     Dates: start: 202001
  2. POMALYST [Suspect]
     Active Substance: POMALIDOMIDE
     Indication: PLASMA CELL MYELOMA
     Dosage: 4 MILLIGRAM
     Route: 048
     Dates: start: 20190129
  3. POMALYST [Suspect]
     Active Substance: POMALIDOMIDE
     Dosage: 3 MILLIGRAM
     Route: 048
     Dates: start: 201904

REACTIONS (12)
  - Muscle spasms [Unknown]
  - White blood cell count decreased [Unknown]
  - Pruritus [Recovered/Resolved]
  - Stomatitis [Unknown]
  - Constipation [Recovered/Resolved]
  - Hypoaesthesia [Unknown]
  - Hypoaesthesia oral [Unknown]
  - Pain [Recovered/Resolved]
  - Nausea [Unknown]
  - Platelet count decreased [Unknown]
  - Nervousness [Recovered/Resolved]
  - Peripheral swelling [Recovered/Resolved]

NARRATIVE: CASE EVENT DATE: 2020
